FAERS Safety Report 15244654 (Version 1)
Quarter: 2018Q3

REPORT INFORMATION
  Report Type: Spontaneous
  Country: US (occurrence: US)
  Receive Date: 20180806
  Receipt Date: 20180806
  Transmission Date: 20181010
  Serious: Yes (Hospitalization)
  Sender: FDA-Public Use
  Company Number: US-LEXICON PHARMACEUTICALS, INC-18-1606-00928

PATIENT
  Sex: Male

DRUGS (13)
  1. XANAX [Concomitant]
     Active Substance: ALPRAZOLAM
  2. DOXYCYCL [Concomitant]
  3. DULOXETINE. [Concomitant]
     Active Substance: DULOXETINE
  4. FENTANYL. [Concomitant]
     Active Substance: FENTANYL
  5. OCTREOTIDE ACETATE. [Concomitant]
     Active Substance: OCTREOTIDE ACETATE
  6. ZOFRAN [Concomitant]
     Active Substance: ONDANSETRON HYDROCHLORIDE
  7. ZOLPIDEM [Concomitant]
     Active Substance: ZOLPIDEM\ZOLPIDEM TARTRATE
  8. TELOTRISTAT ETHYL [Suspect]
     Active Substance: TELOTRISTAT ETHYL
     Indication: CARCINOID SYNDROME
     Route: 048
     Dates: start: 20170331, end: 20180726
  9. METOPROLOL SUCCINATE. [Concomitant]
     Active Substance: METOPROLOL SUCCINATE
  10. PHENERGAN [Concomitant]
     Active Substance: PROMETHAZINE HYDROCHLORIDE
  11. PROLIA [Concomitant]
     Active Substance: DENOSUMAB
  12. LISINOPRIL. [Concomitant]
     Active Substance: LISINOPRIL
  13. MORPHINE [Concomitant]
     Active Substance: MORPHINE

REACTIONS (1)
  - Hospitalisation [Unknown]

NARRATIVE: CASE EVENT DATE: 2018
